FAERS Safety Report 8862558 (Version 1)
Quarter: 2012Q4

REPORT INFORMATION
  Report Type: 
  Country: US (occurrence: US)
  Receive Date: 20121026
  Receipt Date: 20121026
  Transmission Date: 20130627
  Serious: No
  Sender: FDA-Public Use
  Company Number: US-PFIZER INC-2012266327

PATIENT
  Age: 42 Year
  Sex: Female
  Weight: 109 kg

DRUGS (4)
  1. ADVIL [Suspect]
     Indication: HEADACHE
     Dosage: UNK
  2. ADVIL [Suspect]
     Indication: BACK PAIN
     Dosage: 600 mg, every 8 hours
  3. METFORMIN [Concomitant]
     Dosage: 1000 mg, two times a day
  4. GLIPIZIDE [Concomitant]
     Indication: DIABETES MELLITUS
     Dosage: 10 mg, daily

REACTIONS (1)
  - Blood glucose increased [Unknown]
